FAERS Safety Report 9767828 (Version 1)
Quarter: 2013Q4

REPORT INFORMATION
  Report Type: Spontaneous
  Country: IT (occurrence: IT)
  Receive Date: 20131217
  Receipt Date: 20131217
  Transmission Date: 20140711
  Serious: Yes (Other)
  Sender: FDA-Public Use
  Company Number: IT-BRISTOL-MYERS SQUIBB COMPANY-19898196

PATIENT
  Age: 37 Year
  Sex: 0

DRUGS (1)
  1. KENACORT [Suspect]
     Dosage: FORMU:40MG/ML

REACTIONS (3)
  - Overdose [Unknown]
  - Cushing^s syndrome [Unknown]
  - Drug prescribing error [Unknown]
